FAERS Safety Report 18380171 (Version 8)
Quarter: 2021Q3

REPORT INFORMATION
  Report Type: Spontaneous
  Country: US (occurrence: US)
  Receive Date: 20201014
  Receipt Date: 20210917
  Transmission Date: 20211014
  Serious: Yes (Other)
  Sender: FDA-Public Use
  Company Number: US-GLAXOSMITHKLINE-US2020AMR202155

PATIENT
  Sex: Female

DRUGS (7)
  1. ZEJULA [Suspect]
     Active Substance: NIRAPARIB
     Dosage: 200 MG, QD
     Route: 048
  2. ZEJULA [Suspect]
     Active Substance: NIRAPARIB
     Dosage: 200 MG, QD
  3. ZEJULA [Suspect]
     Active Substance: NIRAPARIB
     Dosage: 200 MG, QD
  4. ZEJULA [Suspect]
     Active Substance: NIRAPARIB
     Dosage: 200 MG, QD
  5. ZEJULA [Suspect]
     Active Substance: NIRAPARIB
     Indication: OVARIAN CANCER
     Dosage: UNK
     Dates: start: 20200928
  6. ZEJULA [Suspect]
     Active Substance: NIRAPARIB
     Dosage: 200 MG, QD
  7. ZEJULA [Suspect]
     Active Substance: NIRAPARIB
     Dosage: 200 MG, QD
     Route: 048
     Dates: start: 2020

REACTIONS (14)
  - Blood pressure increased [Unknown]
  - Angina pectoris [Unknown]
  - Acne [Unknown]
  - Throat irritation [Not Recovered/Not Resolved]
  - Restless legs syndrome [Unknown]
  - Feeling abnormal [Unknown]
  - Fungal infection [Unknown]
  - Neuropathy peripheral [Unknown]
  - Thyroid mass [Unknown]
  - Product dose omission in error [Unknown]
  - Anxiety [Unknown]
  - Rash [Recovered/Resolved]
  - Fatigue [Unknown]
  - Sleep disorder [Unknown]
